FAERS Safety Report 9697460 (Version 2)
Quarter: 2013Q4

REPORT INFORMATION
  Report Type: Report from Study
  Country: US (occurrence: US)
  Receive Date: 20131120
  Receipt Date: 20131122
  Transmission Date: 20140711
  Serious: Yes (Hospitalization)
  Sender: FDA-Public Use
  Company Number: PHEH2013US024024

PATIENT
  Sex: Female

DRUGS (7)
  1. ZOMETA [Suspect]
     Indication: PLASMA CELL MYELOMA
     Dosage: EVERY 03 MONTHS
     Dates: start: 20101114
  2. ZOMETA [Suspect]
     Dosage: EVERY 03 MONTHS
     Dates: start: 20130114
  3. ZOMETA [Suspect]
     Dosage: EVERY 03 MONTHS
     Dates: start: 20130311
  4. ZOMETA [Suspect]
     Dosage: EVERY 03 MONTHS
     Dates: start: 20130606
  5. ZOMETA [Suspect]
     Dosage: EVERY 03 MONTHS
     Dates: start: 20130808
  6. ZOMETA [Suspect]
     Dosage: 4 MG, UNK
  7. DEXAM//DEXAMETHASONE [Concomitant]
     Dosage: UNK UKN, UNK

REACTIONS (3)
  - Pneumonia [Recovering/Resolving]
  - Infection [Unknown]
  - Fluid overload [Unknown]
